FAERS Safety Report 14324195 (Version 1)
Quarter: 2017Q4

REPORT INFORMATION
  Report Type: Spontaneous
  Country: FI (occurrence: FI)
  Receive Date: 20171226
  Receipt Date: 20171226
  Transmission Date: 20180321
  Serious: Yes (Other)
  Sender: FDA-Public Use
  Company Number: PHHY2017FI192875

PATIENT
  Age: 65 Year

DRUGS (1)
  1. PRAMIPEXOLE. [Suspect]
     Active Substance: PRAMIPEXOLE
     Indication: PARKINSON^S DISEASE
     Dosage: 105 MG, (LEVODOPA EQUIVALENT DAILY DOSE)
     Route: 065

REACTIONS (1)
  - Hallucination, visual [Unknown]
